FAERS Safety Report 18479130 (Version 3)
Quarter: 2021Q3

REPORT INFORMATION
  Report Type: Report from Study
  Country: US (occurrence: US)
  Receive Date: 20201109
  Receipt Date: 20210813
  Transmission Date: 20211014
  Serious: No
  Sender: FDA-Public Use
  Company Number: NVSC2020US291552

PATIENT
  Sex: Female
  Weight: 43 kg

DRUGS (3)
  1. ILARIS [Suspect]
     Active Substance: CANAKINUMAB
     Dosage: UNK
     Route: 058
     Dates: start: 20210220
  2. ILARIS [Suspect]
     Active Substance: CANAKINUMAB
     Indication: HYPER IGD SYNDROME
     Dosage: 300 MG, Q4W
     Route: 058
     Dates: start: 201802
  3. ILARIS [Suspect]
     Active Substance: CANAKINUMAB
     Dosage: 300 MG, Q4W
     Route: 058
     Dates: start: 20191011

REACTIONS (4)
  - Stomatitis [Unknown]
  - Lip ulceration [Unknown]
  - Tongue ulceration [Unknown]
  - Congenital dyserythropoietic anaemia [Recovering/Resolving]
